FAERS Safety Report 7584095-2 (Version None)
Quarter: 2011Q2

REPORT INFORMATION
  Report Type: 
  Country: None (occurrence: None)
  Receive Date: 20110630
  Receipt Date: 20110629
  Transmission Date: 20111010
  Serious: Yes (Other)
  Sender: FDA-Public Use
  Company Number: US-JNJFOC-20100604780

PATIENT
  Sex: Male

DRUGS (3)
  1. PREDNISONE [Suspect]
     Indication: PRIAPISM
     Route: 048
  2. KETOCONAZOLE [Suspect]
     Route: 048
  3. KETOCONAZOLE [Suspect]
     Indication: PRIAPISM
     Route: 048

REACTIONS (3)
  - PROLACTINOMA [None]
  - BLOOD TESTOSTERONE DECREASED [None]
  - OFF LABEL USE [None]
